FAERS Safety Report 18854625 (Version 2)
Quarter: 2021Q1

REPORT INFORMATION
  Report Type: Spontaneous
  Country: FR (occurrence: FR)
  Receive Date: 20210205
  Receipt Date: 20210302
  Transmission Date: 20210420
  Serious: Yes (Other)
  Sender: FDA-Public Use
  Company Number: FR-PFIZER INC-2021108311

PATIENT
  Age: 30 Year
  Sex: Male

DRUGS (13)
  1. CLINDAMYCINE [CLINDAMYCIN PHOSPHATE] [Suspect]
     Active Substance: CLINDAMYCIN PHOSPHATE
     Indication: ANTIBIOTIC THERAPY
     Dosage: 600 MG
     Route: 042
     Dates: start: 20201216, end: 20210107
  2. LORAZEPAM. [Concomitant]
     Active Substance: LORAZEPAM
     Dosage: 2.5 MG, 1X/DAY
     Route: 048
     Dates: start: 20201209
  3. NEFOPAM HYDROCHLORIDE [Concomitant]
     Active Substance: NEFOPAM HYDROCHLORIDE
     Dosage: 80 MG, DAILY
     Route: 042
  4. PARACETAMOL [Concomitant]
     Active Substance: ACETAMINOPHEN
     Dosage: 4 G
     Route: 042
     Dates: start: 202012
  5. ENOXAPARINE SODIQUE [Concomitant]
     Active Substance: ENOXAPARIN SODIUM
     Dosage: 4000 IU, 1X/DAY
     Route: 042
     Dates: start: 20201217
  6. PIPERACILLIN/TAZOBACTAM [Suspect]
     Active Substance: PIPERACILLIN SODIUM\TAZOBACTAM SODIUM
     Indication: ANTIBIOTIC THERAPY
     Dosage: 4 G
     Route: 042
     Dates: start: 20201216, end: 20210107
  7. RETINOL [Concomitant]
     Active Substance: RETINOL
     Dosage: 25000 IU, 3 APPLICATIONS DAILY
     Route: 047
     Dates: start: 20201211
  8. CARMELLOSE [Concomitant]
     Active Substance: CARBOXYMETHYLCELLULOSE
     Dosage: UNK
     Route: 047
     Dates: start: 20201211
  9. ZOPICLONE [Concomitant]
     Active Substance: ZOPICLONE
     Dosage: 7.5 MG, 1X/DAY
     Route: 048
     Dates: start: 20201208
  10. PANTOPRAZOLE [Suspect]
     Active Substance: PANTOPRAZOLE
     Indication: OESOPHAGITIS
     Dosage: 40 MG
     Route: 042
     Dates: start: 202012, end: 20210107
  11. TRIMEBUTIN [Concomitant]
     Dosage: UNK
     Route: 042
  12. POVIDONE [Concomitant]
     Active Substance: POVIDONE
     Dosage: 2.4 MG, 6 GTT DAILY
     Route: 047
     Dates: start: 20201211
  13. ONDANSETRON [Concomitant]
     Active Substance: ONDANSETRON
     Dosage: 12 MG, DAILY
     Route: 042
     Dates: start: 20201208

REACTIONS (2)
  - Coronavirus infection [Not Recovered/Not Resolved]
  - Agranulocytosis [Recovered/Resolved]

NARRATIVE: CASE EVENT DATE: 20210104
